FAERS Safety Report 14954080 (Version 1)
Quarter: 2018Q2

REPORT INFORMATION
  Report Type: Spontaneous
  Country: US (occurrence: US)
  Receive Date: 20180530
  Receipt Date: 20180530
  Transmission Date: 20180711
  Serious: No
  Sender: FDA-Public Use
  Company Number: US-ENDO PHARMACEUTICALS INC-2017-004247

PATIENT
  Age: 10 Year
  Sex: Female

DRUGS (1)
  1. SUPPRELIN LA [Suspect]
     Active Substance: HISTRELIN ACETATE
     Indication: PRECOCIOUS PUBERTY
     Dosage: 50 MG, YEARLY
     Route: 065
     Dates: start: 20160329

REACTIONS (2)
  - Incorrect drug administration duration [Unknown]
  - Device dislocation [Unknown]

NARRATIVE: CASE EVENT DATE: 20170716
